FAERS Safety Report 11323551 (Version 1)
Quarter: 2015Q3

REPORT INFORMATION
  Report Type: Spontaneous
  Country: IN (occurrence: IN)
  Receive Date: 20150730
  Receipt Date: 20150730
  Transmission Date: 20151125
  Serious: Yes (Other)
  Sender: FDA-Public Use
  Company Number: IN-VIIV HEALTHCARE LIMITED-IN2014GSK028624

PATIENT
  Age: 44 Year
  Sex: Male

DRUGS (4)
  1. COTRIMOXAZOLE [Suspect]
     Active Substance: SULFAMETHOXAZOLE\TRIMETHOPRIM
  2. EFAVIRENZ + LAMIVUDINE + TENOFOVIR DISOPROXIL FUMARATE [Concomitant]
  3. ABACAVIR. [Suspect]
     Active Substance: ABACAVIR
     Indication: HIV INFECTION
     Dosage: 300 MG, BID
  4. ATAZANAVIR + RITONAVIR [Concomitant]
     Active Substance: ATAZANAVIR\RITONAVIR

REACTIONS (12)
  - Pruritus [Unknown]
  - Fatigue [Unknown]
  - Blood test abnormal [Unknown]
  - Hypersensitivity [Unknown]
  - Headache [Unknown]
  - Hepatic function abnormal [Unknown]
  - Decreased appetite [Unknown]
  - Vomiting [Unknown]
  - Rash [Unknown]
  - Pancytopenia [Unknown]
  - Skin lesion [Unknown]
  - Abdominal pain [Unknown]
